FAERS Safety Report 19715708 (Version 2)
Quarter: 2021Q4

REPORT INFORMATION
  Report Type: Report from Study
  Country: US (occurrence: US)
  Receive Date: 20210818
  Receipt Date: 20211105
  Transmission Date: 20220303
  Serious: No
  Sender: FDA-Public Use
  Company Number: US-DOVA PHARMACEUTICALS INC.-DOV-000946

PATIENT
  Sex: Male
  Weight: 98 kg

DRUGS (2)
  1. DOPTELET [Suspect]
     Active Substance: AVATROMBOPAG MALEATE
     Indication: Immune thrombocytopenia
     Dosage: 40 MILLIGRAM, 2 TABLETS (40 MG) THREE DAYS A WEEK
     Route: 048
  2. DOPTELET [Suspect]
     Active Substance: AVATROMBOPAG MALEATE
     Dosage: 1 TABLET (20 MG) ON THE 4 OTHER DAYS IN BETWEEN THE 40 MG DOSES
     Route: 048

REACTIONS (2)
  - Emotional disorder [Unknown]
  - Intentional product misuse [Not Recovered/Not Resolved]
